FAERS Safety Report 8216372-6 (Version None)
Quarter: 2012Q1

REPORT INFORMATION
  Report Type: 
  Country: None (occurrence: None)
  Receive Date: 20120316
  Receipt Date: 20120312
  Transmission Date: 20120608
  Serious: Yes (Hospitalization)
  Sender: FDA-Public Use
  Company Number: PHHY2012FI022504

PATIENT
  Age: 61 Year
  Sex: Male

DRUGS (6)
  1. MIRTAZAPINE [Concomitant]
     Dosage: 45 MG/DAY
  2. CLOZAPINE [Suspect]
     Dosage: 500 MG
  3. KLORPROMAN [Concomitant]
     Dosage: 200 MG/DAY
  4. LEVOZIN [Concomitant]
     Dosage: 50 MG/DAY
  5. ATACAND [Concomitant]
     Dosage: UNK UKN, UNK
  6. METFORMIN HYDROCHLORIDE [Concomitant]
     Dosage: UNK UKN, UNK

REACTIONS (5)
  - PYREXIA [None]
  - PSYCHOTIC DISORDER [None]
  - URINARY RETENTION [None]
  - NEUTROPENIA [None]
  - PYELONEPHRITIS [None]
